FAERS Safety Report 10058511 (Version 1)
Quarter: 2014Q2

REPORT INFORMATION
  Report Type: Spontaneous
  Country: US (occurrence: US)
  Receive Date: 20140404
  Receipt Date: 20140404
  Transmission Date: 20141212
  Serious: Yes (Hospitalization)
  Sender: FDA-Public Use
  Company Number: US-BAYER-2014-049148

PATIENT
  Age: 36 Year
  Sex: Female
  Weight: 60.32 kg

DRUGS (4)
  1. YASMIN [Suspect]
  2. CIPRO [Concomitant]
     Dosage: 500 MG, UNK
     Route: 048
     Dates: start: 20040308
  3. ADVIL [Concomitant]
     Dosage: UNK
     Route: 048
     Dates: start: 20040411
  4. CENTRUM [Concomitant]
     Dosage: UNK
     Route: 048
     Dates: start: 20040413

REACTIONS (2)
  - Pulmonary embolism [None]
  - Deep vein thrombosis [None]
